FAERS Safety Report 6643873-4 (Version None)
Quarter: 2010Q1

REPORT INFORMATION
  Report Type: 
  Country: None (occurrence: None)
  Receive Date: 20100316
  Receipt Date: 20100301
  Transmission Date: 20100710
  Serious: Yes (Hospitalization, Other)
  Sender: FDA-Public Use
  Company Number: 062-20785-10012118

PATIENT
  Age: 69 Year
  Sex: Female
  Weight: 56 kg

DRUGS (10)
  1. THALIDOMIDE CELGENE (THALIDOMIDE) (CAPSULES) [Suspect]
     Indication: LEUKAEMIA
     Dosage: 50 MG, 1 IN 1 D, ORAL
     Route: 048
     Dates: start: 20090407, end: 20100114
  2. TARGIN [Suspect]
     Indication: DRUG USE FOR UNKNOWN INDICATION
  3. FENTANYL-100 [Suspect]
     Indication: DRUG USE FOR UNKNOWN INDICATION
  4. PANTOPRAZOLE SODIUM [Suspect]
     Indication: DRUG USE FOR UNKNOWN INDICATION
  5. METAMIZOLE (METAMIZOLE) [Suspect]
     Indication: DRUG USE FOR UNKNOWN INDICATION
  6. NULYTELY [Suspect]
     Indication: DRUG USE FOR UNKNOWN INDICATION
  7. FRAGMIN [Suspect]
     Indication: DRUG USE FOR UNKNOWN INDICATION
  8. RAMIPRIL [Concomitant]
  9. LASIX [Concomitant]
  10. PREDNISOLONE [Concomitant]

REACTIONS (9)
  - ABDOMINAL PAIN UPPER [None]
  - CARDIAC DISORDER [None]
  - CARDIAC FAILURE [None]
  - CONDITION AGGRAVATED [None]
  - DYSPNOEA [None]
  - GENERAL PHYSICAL HEALTH DETERIORATION [None]
  - HAEMATOCRIT DECREASED [None]
  - HAEMOGLOBIN DECREASED [None]
  - PLASMACYTOMA [None]
